FAERS Safety Report 18280069 (Version 2)
Quarter: 2021Q1

REPORT INFORMATION
  Report Type: Spontaneous
  Country: NZ (occurrence: NZ)
  Receive Date: 20200918
  Receipt Date: 20210223
  Transmission Date: 20210419
  Serious: Yes (Life-Threatening)
  Sender: FDA-Public Use
  Company Number: NZ-ROCHE-2676018

PATIENT

DRUGS (2)
  1. COTELLIC [Suspect]
     Active Substance: COBIMETINIB
     Indication: PRODUCT USED FOR UNKNOWN INDICATION
     Route: 065
     Dates: start: 202008
  2. ZELBORAF [Suspect]
     Active Substance: VEMURAFENIB
     Indication: PRODUCT USED FOR UNKNOWN INDICATION
     Route: 065
     Dates: start: 202008

REACTIONS (6)
  - Myocarditis [Recovered/Resolved]
  - Dialysis [Recovered/Resolved]
  - Sepsis [Recovered/Resolved]
  - Hepatitis [Recovered/Resolved]
  - Renal failure [Recovered/Resolved]
  - Myositis [Recovered/Resolved]
